FAERS Safety Report 20168470 (Version 1)
Quarter: 2021Q4

REPORT INFORMATION
  Report Type: Spontaneous
  Country: FR (occurrence: FR)
  Receive Date: 20211210
  Receipt Date: 20211210
  Transmission Date: 20220303
  Serious: Yes (Other)
  Sender: FDA-Public Use
  Company Number: FR-VIWITPHARMA-2021VWTLIT00008

PATIENT
  Age: 44 Year
  Sex: Female

DRUGS (2)
  1. TOPIRAMATE [Suspect]
     Active Substance: TOPIRAMATE
     Indication: Seizure
     Route: 065
  2. ATROPINE [Interacting]
     Active Substance: ATROPINE
     Dosage: 1%
     Route: 065

REACTIONS (2)
  - Choroidal effusion [Recovered/Resolved]
  - Visual impairment [Recovered/Resolved]
